FAERS Safety Report 8560471-6 (Version None)
Quarter: 2012Q3

REPORT INFORMATION
  Report Type: 
  Country: None (occurrence: None)
  Receive Date: 20120802
  Receipt Date: 20120724
  Transmission Date: 20120928
  Serious: Yes (Hospitalization)
  Sender: FDA-Public Use
  Company Number: US-ASTRAZENECA-2012SE52504

PATIENT
  Age: 50 Year
  Sex: Male
  Weight: 78 kg

DRUGS (8)
  1. LEXAPRO [Concomitant]
  2. TOPROL-XL [Suspect]
     Route: 048
  3. ASPIRIN [Concomitant]
  4. XYZAL [Concomitant]
  5. EFFIENT [Concomitant]
  6. CRESTOR [Suspect]
     Route: 048
  7. VITAMIN B1 TAB [Concomitant]
  8. ENALAPRIL MALEATE [Concomitant]

REACTIONS (13)
  - FALL [None]
  - LOSS OF CONSCIOUSNESS [None]
  - CONCUSSION [None]
  - INSOMNIA [None]
  - ASPARTATE AMINOTRANSFERASE INCREASED [None]
  - ALCOHOL ABUSE [None]
  - ALANINE AMINOTRANSFERASE INCREASED [None]
  - PSYCHOMOTOR HYPERACTIVITY [None]
  - IMPAIRED WORK ABILITY [None]
  - DEPRESSION [None]
  - HYPONATRAEMIA [None]
  - HEADACHE [None]
  - BLOOD CREATININE INCREASED [None]
